FAERS Safety Report 18227342 (Version 1)
Quarter: 2020Q3

REPORT INFORMATION
  Report Type: Report from Study
  Country: US (occurrence: US)
  Receive Date: 20200903
  Receipt Date: 20200903
  Transmission Date: 20201103
  Serious: Yes (Other)
  Sender: FDA-Public Use
  Company Number: US-MYLANLABS-2020M1076008

PATIENT
  Age: 53 Year
  Sex: Male

DRUGS (1)
  1. CARBIDOPA/LEVODOPA [Suspect]
     Active Substance: CARBIDOPA\LEVODOPA
     Indication: PERRY SYNDROME
     Route: 048

REACTIONS (3)
  - On and off phenomenon [Unknown]
  - Dyskinesia [Unknown]
  - Off label use [Unknown]
